FAERS Safety Report 8565115 (Version 7)
Quarter: 2013Q4

REPORT INFORMATION
  Report Type: Report from Study
  Country: CA (occurrence: CA)
  Receive Date: 20120516
  Receipt Date: 20131206
  Transmission Date: 20140711
  Serious: Yes (Hospitalization, Other)
  Sender: FDA-Public Use
  Company Number: PHHY2012CA041547

PATIENT
  Sex: Female

DRUGS (1)
  1. SANDOSTATIN LAR [Suspect]
     Indication: NEUROENDOCRINE TUMOUR
     Dosage: 30 MG, EVERY 4 WEEKS
     Route: 030
     Dates: start: 20120319

REACTIONS (7)
  - Blood pressure inadequately controlled [Unknown]
  - Dyspnoea [Unknown]
  - Heart rate increased [Unknown]
  - Diabetic neuropathy [Unknown]
  - Pneumonia [Unknown]
  - Pain [Unknown]
  - Alopecia [Unknown]
